FAERS Safety Report 5069874-8 (Version None)
Quarter: 2006Q3

REPORT INFORMATION
  Report Type: 
  Country: None (occurrence: None)
  Receive Date: 20060731
  Receipt Date: 20060719
  Transmission Date: 20061208
  Serious: Yes (Life-Threatening)
  Sender: FDA-Public Use
  Company Number: OMPQ-NO-0607S-1232

PATIENT
  Age: 80 Year
  Sex: Male

DRUGS (1)
  1. OMNIPAQUE 140 [Suspect]
     Indication: DRUG USE FOR UNKNOWN INDICATION
     Dosage: 100 ML, SINGLE DOSE, I.V.
     Route: 042
     Dates: start: 20060718, end: 20060718

REACTIONS (4)
  - COLITIS ISCHAEMIC [None]
  - DISSEMINATED INTRAVASCULAR COAGULATION [None]
  - LOSS OF CONSCIOUSNESS [None]
  - SHOCK [None]
